FAERS Safety Report 8374956-9 (Version None)
Quarter: 2012Q2

REPORT INFORMATION
  Report Type: 
  Country: None (occurrence: None)
  Receive Date: 20120521
  Receipt Date: 20120509
  Transmission Date: 20120825
  Serious: Yes (Life-Threatening, Other)
  Sender: FDA-Public Use
  Company Number: US-ROCHE-1060063

PATIENT
  Sex: Male
  Weight: 88.9 kg

DRUGS (11)
  1. COUMADIN [Concomitant]
  2. XELODA [Suspect]
     Indication: COLORECTAL CANCER
  3. FLUOROURACIL [Concomitant]
     Indication: COLORECTAL CANCER METASTATIC
  4. IRINOTECAN HCL [Concomitant]
     Indication: COLORECTAL CANCER METASTATIC
  5. ZOCOR [Concomitant]
  6. AVASTIN [Suspect]
     Indication: COLORECTAL CANCER
     Route: 042
     Dates: start: 20110401, end: 20111201
  7. TOPROL-XL [Concomitant]
  8. PRILOSEC [Concomitant]
  9. INSULIN [Concomitant]
  10. WELLBUTRIN [Concomitant]
  11. AMARYL [Concomitant]

REACTIONS (6)
  - DYSPNOEA [None]
  - DISEASE PROGRESSION [None]
  - DISEASE RECURRENCE [None]
  - CARDIAC FAILURE CONGESTIVE [None]
  - CARDIOMYOPATHY [None]
  - EJECTION FRACTION DECREASED [None]
